FAERS Safety Report 9347583 (Version 1)
Quarter: 2013Q2

REPORT INFORMATION
  Report Type: Spontaneous
  Country: US (occurrence: US)
  Receive Date: 20130614
  Receipt Date: 20130614
  Transmission Date: 20140414
  Serious: No
  Sender: FDA-Public Use
  Company Number: US-BIOGENIDEC-2013BI050453

PATIENT
  Age: 56 Year
  Sex: Female

DRUGS (6)
  1. AVONEX [Suspect]
     Indication: MULTIPLE SCLEROSIS
     Route: 030
     Dates: start: 20130513
  2. AVONEX [Suspect]
     Indication: MULTIPLE SCLEROSIS
     Route: 030
     Dates: start: 20130603
  3. EVASTIN EYE INJECTION [Concomitant]
     Indication: DIABETIC RETINOPATHY
     Dates: start: 20130531, end: 20130531
  4. EVASTIN EYE INJECTION [Concomitant]
     Indication: DIABETIC RETINOPATHY
     Dates: start: 20130604, end: 20130604
  5. JANUVIA [Concomitant]
     Indication: DIABETES MELLITUS
  6. GLIMEPIRIDE [Concomitant]
     Indication: DIABETES MELLITUS

REACTIONS (8)
  - Local swelling [Not Recovered/Not Resolved]
  - Injury associated with device [Recovered/Resolved]
  - Skin graft [Unknown]
  - Photophobia [Not Recovered/Not Resolved]
  - Injection site bruising [Not Recovered/Not Resolved]
  - Swelling [Not Recovered/Not Resolved]
  - Injection site haemorrhage [Not Recovered/Not Resolved]
  - Influenza like illness [Recovered/Resolved]
